FAERS Safety Report 7503169-5 (Version None)
Quarter: 2011Q2

REPORT INFORMATION
  Report Type: 
  Country: None (occurrence: None)
  Receive Date: 20110525
  Receipt Date: 20101102
  Transmission Date: 20111010
  Serious: No
  Sender: FDA-Public Use
  Company Number: US-NOVEN-ALL1-2010-05745

PATIENT
  Sex: Female
  Weight: 26.304 kg

DRUGS (6)
  1. STRATTERA [Concomitant]
  2. DAYTRANA [Suspect]
  3. DAYTRANA [Suspect]
  4. DAYTRANA [Suspect]
     Dosage: 20 MG, 1X/DAY:QD
     Route: 062
  5. STRATTERA [Concomitant]
  6. STRATTERA [Concomitant]
     Dosage: 10 MG, UNKNOWN
     Route: 048

REACTIONS (3)
  - WRONG TECHNIQUE IN DRUG USAGE PROCESS [None]
  - NO ADVERSE EVENT [None]
  - PRODUCT QUALITY ISSUE [None]
